FAERS Safety Report 16617666 (Version 2)
Quarter: 2019Q4

REPORT INFORMATION
  Report Type: Other
  Country: US (occurrence: US)
  Receive Date: 20190723
  Receipt Date: 20191120
  Transmission Date: 20200122
  Serious: Yes (Hospitalization, Other)
  Sender: FDA-Public Use
  Company Number: US-AMAG PHARMACEUTICALS, INC.-AMAG201903675

PATIENT
  Age: 30 Year
  Sex: Female

DRUGS (2)
  1. PRENATAL [Concomitant]
     Active Substance: VITAMINS
     Indication: PRODUCT USED FOR UNKNOWN INDICATION
     Dates: start: 20190409
  2. MAKENA [Suspect]
     Active Substance: HYDROXYPROGESTERONE CAPROATE
     Indication: PREMATURE DELIVERY
     Dosage: 250 MG/ML, WEEKLY
     Route: 058
     Dates: start: 20190612, end: 20190619

REACTIONS (4)
  - Amniotic cavity infection [Recovered/Resolved]
  - Retained products of conception [Recovered/Resolved]
  - Preterm premature rupture of membranes [Recovered/Resolved]
  - Placental disorder [Recovered/Resolved]

NARRATIVE: CASE EVENT DATE: 20190613
